FAERS Safety Report 13083313 (Version 4)
Quarter: 2017Q1

REPORT INFORMATION
  Report Type: Report from Study
  Country: None (occurrence: CZ)
  Receive Date: 20170104
  Receipt Date: 20170224
  Transmission Date: 20170428
  Serious: Yes (Hospitalization, Other)
  Sender: FDA-Public Use
  Company Number: CZ-ABBVIE-17K-217-1827321-00

PATIENT
  Age: 28 Year
  Sex: Male
  Weight: 62 kg

DRUGS (2)
  1. HUMIRA [Suspect]
     Active Substance: ADALIMUMAB
     Indication: ANKYLOSING SPONDYLITIS
     Route: 058
     Dates: start: 20120813, end: 20160222
  2. HUMIRA [Suspect]
     Active Substance: ADALIMUMAB
     Route: 058
     Dates: start: 20160321, end: 20161024

REACTIONS (5)
  - Lung infiltration [Not Recovered/Not Resolved]
  - Ear infection [Not Recovered/Not Resolved]
  - Chest wall tumour [Unknown]
  - Chest discomfort [Not Recovered/Not Resolved]
  - Pulmonary tuberculosis [Unknown]

NARRATIVE: CASE EVENT DATE: 20161104
